FAERS Safety Report 8932478 (Version 1)
Quarter: 2012Q4

REPORT INFORMATION
  Report Type: Spontaneous
  Country: US (occurrence: None)
  Receive Date: 20121126
  Receipt Date: 20121126
  Transmission Date: 20130627
  Serious: Yes (Disabling)
  Sender: FDA-Public Use
  Company Number: None

PATIENT
  Age: 35 Year
  Sex: Female
  Weight: 54.43 kg

DRUGS (1)
  1. LEXAPRO [Suspect]
     Indication: DEPRESSION
     Route: 048
     Dates: start: 20121018, end: 20121116

REACTIONS (9)
  - Depression [None]
  - Product quality issue [None]
  - Suicidal ideation [None]
  - Impaired work ability [None]
  - Mental disorder [None]
  - Paraesthesia [None]
  - Abnormal dreams [None]
  - Abnormal dreams [None]
  - Product formulation issue [None]
